FAERS Safety Report 18913336 (Version 1)
Quarter: 2021Q1

REPORT INFORMATION
  Report Type: Report from Study
  Country: US (occurrence: US)
  Receive Date: 20210219
  Receipt Date: 20210219
  Transmission Date: 20210420
  Serious: Yes (Death, Hospitalization)
  Sender: FDA-Public Use
  Company Number: US-TAIHO ONCOLOGY  INC-EU-2021-00502

PATIENT
  Age: 73 Year
  Sex: Male

DRUGS (1)
  1. LONSURF [Suspect]
     Active Substance: TIPIRACIL HYDROCHLORIDE\TRIFLURIDINE
     Indication: PANCREATIC CARCINOMA
     Dosage: CURRENT CYCLE UNKNOWN
     Route: 048
     Dates: start: 20201208, end: 202102

REACTIONS (11)
  - White blood cell count decreased [Unknown]
  - Myocardial infarction [Unknown]
  - Sepsis [Unknown]
  - Oesophageal spasm [Unknown]
  - Vomiting [Unknown]
  - Inappropriate schedule of product administration [Unknown]
  - Death [Fatal]
  - Intestinal obstruction [Unknown]
  - Escherichia infection [Unknown]
  - Intentional product use issue [Unknown]
  - Jaundice [Unknown]

NARRATIVE: CASE EVENT DATE: 20210205
